FAERS Safety Report 15524017 (Version 1)
Quarter: 2018Q4

REPORT INFORMATION
  Report Type: Spontaneous
  Country: US (occurrence: US)
  Receive Date: 20181018
  Receipt Date: 20181018
  Transmission Date: 20190205
  Serious: No
  Sender: FDA-Public Use
  Company Number: US-HIKMA PHARMACEUTICALS USA INC.-US-H14001-18-07410

PATIENT
  Age: 70 Year
  Sex: Female

DRUGS (6)
  1. INFUMORPH [Suspect]
     Active Substance: MORPHINE SULFATE
     Indication: BACK PAIN
     Route: 037
     Dates: start: 20160406
  2. LIORESAL [Suspect]
     Active Substance: BACLOFEN
     Indication: SPINAL PAIN
  3. LIORESAL [Suspect]
     Active Substance: BACLOFEN
     Indication: BACK PAIN
     Route: 065
     Dates: start: 20160406
  4. INFUMORPH [Suspect]
     Active Substance: MORPHINE SULFATE
     Indication: SPINAL PAIN
  5. PRIALT [Suspect]
     Active Substance: ZICONOTIDE ACETATE
     Indication: BACK PAIN
     Route: 065
     Dates: start: 20160406
  6. PRIALT [Suspect]
     Active Substance: ZICONOTIDE ACETATE
     Indication: SPINAL PAIN

REACTIONS (1)
  - Therapy non-responder [Unknown]

NARRATIVE: CASE EVENT DATE: 20160406
